FAERS Safety Report 4566779-3 (Version None)
Quarter: 2005Q1

REPORT INFORMATION
  Report Type: 
  Country: None (occurrence: None)
  Receive Date: 20050201
  Receipt Date: 20011016
  Transmission Date: 20050727
  Serious: Yes (Other)
  Sender: FDA-Public Use
  Company Number: US-BRISTOL-MYERS SQUIBB COMPANY-11546603

PATIENT
  Age: 44 Year
  Sex: Female

DRUGS (6)
  1. STADOL [Suspect]
     Route: 045
     Dates: start: 19950203
  2. CYCLOBENZAPRINE [Concomitant]
  3. ULTRAM [Concomitant]
  4. ACETAMINOPHEN AND CODEINE PHOSPHATE [Concomitant]
  5. HYTRIN [Concomitant]
  6. HYDROCODONE + ACETAMINOPHEN [Concomitant]

REACTIONS (2)
  - DEPENDENCE [None]
  - DRUG WITHDRAWAL SYNDROME [None]
